FAERS Safety Report 10879787 (Version 7)
Quarter: 2018Q3

REPORT INFORMATION
  Report Type: Spontaneous
  Country: US (occurrence: US)
  Receive Date: 20150302
  Receipt Date: 20180810
  Transmission Date: 20181010
  Serious: No
  Sender: FDA-Public Use
  Company Number: US-PFIZER INC-2015063184

PATIENT
  Age: 78 Year
  Sex: Female
  Weight: 76 kg

DRUGS (17)
  1. LYRICA [Suspect]
     Active Substance: PREGABALIN
     Indication: DIABETES MELLITUS
  2. CELEBREX [Concomitant]
     Active Substance: CELECOXIB
     Dosage: UNK
  3. LORATADINE. [Concomitant]
     Active Substance: LORATADINE
     Indication: COUGH
     Dosage: 10 MG, DAILY
  4. KRILL OIL [Concomitant]
     Active Substance: DIETARY SUPPLEMENT
     Dosage: 300 MG, 1X/DAY
     Route: 048
  5. ASPIRIN 81 [Concomitant]
     Active Substance: ASPIRIN
     Dosage: UNK, 1X/DAY
  6. ATORVASTATIN CALCIUM. [Concomitant]
     Active Substance: ATORVASTATIN CALCIUM
     Dosage: 40 MG, 1X/DAY (1 TABLET)
  7. LYRICA [Suspect]
     Active Substance: PREGABALIN
     Indication: PAIN IN EXTREMITY
  8. METOPROLOL TARTRATE. [Concomitant]
     Active Substance: METOPROLOL TARTRATE
     Dosage: 25 MG, 2X/DAY
  9. LYRICA [Suspect]
     Active Substance: PREGABALIN
     Indication: DIABETES MELLITUS INADEQUATE CONTROL
     Dosage: 75 MG, 1X/DAY (AT NIGHT)
     Route: 048
  10. ACETAMINOPHEN W/HYDROCODONE [Concomitant]
     Active Substance: ACETAMINOPHEN\HYDROCODONE
     Indication: OSTEOARTHRITIS
     Dosage: 1 DF, AS NEEDED (5?325 MG, 1 TABLET EVERY 6 HOURS)
  11. BONIVA [Concomitant]
     Active Substance: IBANDRONATE SODIUM
     Dosage: 150 MG, MONTHLY (1 TABLET)
  12. VESICARE [Concomitant]
     Active Substance: SOLIFENACIN SUCCINATE
     Dosage: 10 MG, MONTHLY (1 TABLET)
  13. LOSARTAN POTASSIUM. [Concomitant]
     Active Substance: LOSARTAN POTASSIUM
     Dosage: 25 MG, DAILY
  14. CLOTRIMAZOLE. [Concomitant]
     Active Substance: CLOTRIMAZOLE
     Indication: TINEA PEDIS
     Dosage: 1 DF, 2X/DAY
  15. AFRIN [Concomitant]
     Active Substance: OXYMETAZOLINE
     Indication: COUGH
     Dosage: 1 DF, 1X/DAY (1 SPRAY AT BEDTIME)
  16. CRANBERRY. [Concomitant]
     Active Substance: CRANBERRY
     Dosage: UNK, DAILY
     Route: 048
  17. JANUMET [Concomitant]
     Active Substance: METFORMIN HYDROCHLORIDE\SITAGLIPTIN PHOSPHATE
     Dosage: 1.5 DF, DAILY

REACTIONS (2)
  - Product use in unapproved indication [Unknown]
  - Hypoacusis [Not Recovered/Not Resolved]
